FAERS Safety Report 5128483-2 (Version None)
Quarter: 2006Q4

REPORT INFORMATION
  Report Type: 
  Country: None (occurrence: None)
  Receive Date: 20061003
  Receipt Date: 20060920
  Transmission Date: 20070319
  Serious: Yes (Life-Threatening, Hospitalization, Disabling, Other)
  Sender: FDA-Public Use
  Company Number: THYM-10965

PATIENT
  Age: 40 Year
  Sex: Male
  Weight: 127.0072 kg

DRUGS (5)
  1. THYMOGLOBULINE [Suspect]
     Indication: RENAL TRANSPLANT
     Dosage: 1.5 MG/KG ONCE IV
     Route: 042
     Dates: start: 20060403, end: 20060403
  2. CELL CEPT [Concomitant]
  3. METHYLPREDNISOLONE 4MG TAB [Concomitant]
  4. FUROSEMIDE [Concomitant]
  5. SODIUM CHLORIDE [Concomitant]

REACTIONS (8)
  - BLOOD CREATININE INCREASED [None]
  - COMPLICATIONS OF TRANSPLANTED KIDNEY [None]
  - CYTOKINE RELEASE SYNDROME [None]
  - HYPERSENSITIVITY [None]
  - HYPOTENSION [None]
  - PYREXIA [None]
  - RENAL TUBULAR NECROSIS [None]
  - SUPRAVENTRICULAR TACHYCARDIA [None]
